FAERS Safety Report 10057091 (Version 1)
Quarter: 2014Q2

REPORT INFORMATION
  Report Type: Spontaneous
  Country: US (occurrence: US)
  Receive Date: 20140403
  Receipt Date: 20140403
  Transmission Date: 20141212
  Serious: Yes (Death, Life-Threatening, Hospitalization, Disabling)
  Sender: FDA-Public Use
  Company Number: US-BAYER-2014-047046

PATIENT
  Age: 36 Year
  Sex: Female
  Weight: 73 kg

DRUGS (1)
  1. MIRENA [Suspect]
     Dosage: 20 MCG/24HR, CONT
     Route: 015

REACTIONS (6)
  - Activities of daily living impaired [Fatal]
  - Disorientation [Fatal]
  - Epilepsy [Fatal]
  - Amnesia [Fatal]
  - Convulsion [Fatal]
  - Loss of consciousness [Fatal]
